FAERS Safety Report 10396764 (Version 1)
Quarter: 2014Q3

REPORT INFORMATION
  Report Type: Other
  Country: AR (occurrence: AR)
  Receive Date: 20140820
  Receipt Date: 20140820
  Transmission Date: 20150326
  Serious: Yes (Other)
  Sender: FDA-Public Use
  Company Number: AR-BRISTOL-MYERS SQUIBB COMPANY-21300918

PATIENT
  Age: 63 Year
  Sex: Male

DRUGS (4)
  1. BASILIXIMAB [Suspect]
     Active Substance: BASILIXIMAB
  2. BELATACEPT [Suspect]
     Active Substance: BELATACEPT
     Indication: RENAL TRANSPLANT
  3. MYFORTIC [Suspect]
     Active Substance: MYCOPHENOLATE SODIUM
     Indication: RENAL TRANSPLANT
  4. MEPREDNISONE [Suspect]
     Active Substance: MEPREDNISONE
     Indication: RENAL TRANSPLANT

REACTIONS (4)
  - Overdose [Unknown]
  - Guillain-Barre syndrome [Unknown]
  - Kidney transplant rejection [Unknown]
  - Off label use [Unknown]
